FAERS Safety Report 6196827-9 (Version None)
Quarter: 2009Q2

REPORT INFORMATION
  Report Type: 
  Country: None (occurrence: None)
  Receive Date: 20090520
  Receipt Date: 20090511
  Transmission Date: 20091009
  Serious: Yes (Other)
  Sender: FDA-Public Use
  Company Number: DE-WATSON-2009-03354

PATIENT
  Age: 42 Year
  Sex: Male

DRUGS (5)
  1. MONODOX [Suspect]
     Indication: WHIPPLE'S DISEASE
     Dosage: UNK
  2. HYDROXYCHLOROQUINE SULFATE (WATSON LABORATORIES) [Suspect]
     Indication: WHIPPLE'S DISEASE
     Dosage: UNK
     Dates: start: 20060101
  3. SULFAMETHOXAZOLE AND TRIMETHOPRIM [Suspect]
     Indication: WHIPPLE'S DISEASE
     Dosage: UNK
     Dates: start: 20060101
  4. CEFTRIAXONE [Suspect]
     Indication: WHIPPLE'S DISEASE
     Dosage: UNK
     Dates: start: 20060101
  5. STREPTOMICIN [Suspect]
     Indication: WHIPPLE'S DISEASE
     Dosage: UNK
     Dates: start: 20070101

REACTIONS (1)
  - IMMUNE RECONSTITUTION SYNDROME [None]
